FAERS Safety Report 12499475 (Version 1)
Quarter: 2016Q2

REPORT INFORMATION
  Report Type: Report from Study
  Country: US (occurrence: US)
  Receive Date: 20160627
  Receipt Date: 20160627
  Transmission Date: 20160815
  Serious: Yes (Hospitalization, Other)
  Sender: FDA-Public Use
  Company Number: US-BAYER-2015-032802

PATIENT
  Age: 83 Year
  Sex: Female
  Weight: 44.9 kg

DRUGS (9)
  1. ADEMPAS [Suspect]
     Active Substance: RIOCIGUAT
     Indication: PULMONARY ARTERIAL HYPERTENSION
     Dosage: 2.5 MG, TID
     Route: 048
  2. ADEMPAS [Suspect]
     Active Substance: RIOCIGUAT
     Indication: PULMONARY ARTERIAL HYPERTENSION
     Dosage: 2 MG, TID
     Route: 048
  3. ADEMPAS [Suspect]
     Active Substance: RIOCIGUAT
     Indication: PULMONARY ARTERIAL HYPERTENSION
     Dosage: 2 MG, TID
     Route: 048
  4. LETAIRIS [Concomitant]
     Active Substance: AMBRISENTAN
  5. COUMADIN [Concomitant]
     Active Substance: WARFARIN SODIUM
  6. ADEMPAS [Suspect]
     Active Substance: RIOCIGUAT
     Indication: PULMONARY ARTERIAL HYPERTENSION
     Dosage: 2.5 MG, TID
     Route: 048
  7. ADEMPAS [Suspect]
     Active Substance: RIOCIGUAT
     Indication: PULMONARY ARTERIAL HYPERTENSION
     Dosage: UNK
     Route: 048
     Dates: start: 20140707
  8. ADEMPAS [Suspect]
     Active Substance: RIOCIGUAT
     Indication: PULMONARY ARTERIAL HYPERTENSION
     Dosage: 2.5 MG, TID
     Route: 048
  9. ADEMPAS [Suspect]
     Active Substance: RIOCIGUAT
     Indication: PULMONARY ARTERIAL HYPERTENSION
     Dosage: 2.0 MG, TID
     Route: 048

REACTIONS (15)
  - Multiple allergies [None]
  - Dizziness [None]
  - Diarrhoea [None]
  - Drug dose omission [None]
  - Blood pressure decreased [None]
  - Multiple allergies [Unknown]
  - Abdominal pain [Unknown]
  - Dry skin [Unknown]
  - Dizziness [Unknown]
  - Pneumonia [Unknown]
  - Constipation [Unknown]
  - Dyspnoea exertional [Unknown]
  - Nasal congestion [Unknown]
  - Diverticulitis [Unknown]
  - Tremor [None]

NARRATIVE: CASE EVENT DATE: 201308
